FAERS Safety Report 5424825-9 (Version None)
Quarter: 2007Q3

REPORT INFORMATION
  Report Type: 
  Country: None (occurrence: None)
  Receive Date: 20070822
  Receipt Date: 20070808
  Transmission Date: 20080115
  Serious: Yes (Death)
  Sender: FDA-Public Use
  Company Number: 2007US001667

PATIENT
  Age: 48 Year
  Sex: Male

DRUGS (1)
  1. PROGRAF [Suspect]
     Indication: LIVER TRANSPLANT
     Dosage: 2 MG, BID
     Dates: start: 20041101, end: 20061022

REACTIONS (2)
  - METASTATIC SQUAMOUS CELL CARCINOMA [None]
  - THROAT CANCER [None]
